FAERS Safety Report 13697078 (Version 3)
Quarter: 2017Q3

REPORT INFORMATION
  Report Type: Other
  Country: US (occurrence: US)
  Receive Date: 20170628
  Receipt Date: 20170911
  Transmission Date: 20171127
  Serious: Yes (Hospitalization, Other)
  Sender: FDA-Public Use
  Company Number: US-DEXPHARM-20170919

PATIENT
  Age: 25 Year
  Sex: Male

DRUGS (1)
  1. LANSOPRAZOLE. [Suspect]
     Active Substance: LANSOPRAZOLE
     Indication: GASTRINOMA

REACTIONS (4)
  - Withdrawal syndrome [Unknown]
  - Abdominal pain [Unknown]
  - Drug ineffective [Unknown]
  - Feeding disorder [Unknown]
